FAERS Safety Report 4387611-7 (Version None)
Quarter: 2004Q2

REPORT INFORMATION
  Report Type: 
  Country: None (occurrence: None)
  Receive Date: 20040630
  Receipt Date: 20040519
  Transmission Date: 20050107
  Serious: No
  Sender: FDA-Public Use
  Company Number: US-GLAXOSMITHKLINE-A0511453A

PATIENT
  Age: 57 Year
  Sex: Female

DRUGS (5)
  1. ADVAIR HFA [Suspect]
     Dosage: 1PUFF TWICE PER DAY
     Route: 055
     Dates: start: 20040401
  2. LASIX [Concomitant]
  3. SYNTHROID [Concomitant]
  4. OXYGEN [Concomitant]
  5. FOSAMAX [Concomitant]

REACTIONS (1)
  - SWELLING [None]
